FAERS Safety Report 21327755 (Version 1)
Quarter: 2022Q3

REPORT INFORMATION
  Report Type: Other
  Country: US (occurrence: None)
  Receive Date: 20220913
  Receipt Date: 20220913
  Transmission Date: 20221026
  Serious: Yes (Hospitalization, Other)
  Sender: FDA-Public Use
  Company Number: US-ROCHE-3172677

PATIENT
  Age: 47 Year
  Sex: Female
  Weight: 102.15 kg

DRUGS (2)
  1. OCREVUS [Suspect]
     Active Substance: OCRELIZUMAB
     Indication: Multiple sclerosis
     Dosage: NO
     Route: 042
     Dates: start: 2021, end: 202204
  2. GILENYA [Concomitant]
     Active Substance: FINGOLIMOD HYDROCHLORIDE

REACTIONS (6)
  - COVID-19 [Recovered/Resolved with Sequelae]
  - Breast cancer [Unknown]
  - Fatigue [Not Recovered/Not Resolved]
  - Gait disturbance [Recovered/Resolved]
  - Memory impairment [Not Recovered/Not Resolved]
  - Herpes zoster [Recovered/Resolved]

NARRATIVE: CASE EVENT DATE: 20220101
